FAERS Safety Report 21003488 (Version 1)
Quarter: 2022Q2

REPORT INFORMATION
  Report Type: Spontaneous
  Country: GB (occurrence: GB)
  Receive Date: 20220624
  Receipt Date: 20220624
  Transmission Date: 20220721
  Serious: Yes (Hospitalization, Other)
  Sender: FDA-Public Use
  Company Number: GB-ORGANON-O2206GBR001525

PATIENT
  Sex: Female

DRUGS (6)
  1. SIMVASTATIN [Suspect]
     Active Substance: SIMVASTATIN
     Dosage: UNK
     Route: 048
  2. ASTRAZENECA COVID-19 VACCINE [Suspect]
     Active Substance: AZD-1222
     Indication: COVID-19 immunisation
     Dosage: FIRST DOSE
  3. ALOGLIPTIN [Concomitant]
     Active Substance: ALOGLIPTIN
     Dosage: UNK
  4. GLIMEPIRIDE [Concomitant]
     Active Substance: GLIMEPIRIDE
     Dosage: UNK
  5. METFORMIN [Concomitant]
     Active Substance: METFORMIN HYDROCHLORIDE
     Dosage: UNK
  6. OLMESARTAN [Concomitant]
     Active Substance: OLMESARTAN
     Dosage: UNK

REACTIONS (1)
  - Acute kidney injury [Recovering/Resolving]
